FAERS Safety Report 12620684 (Version 1)
Quarter: 2016Q3

REPORT INFORMATION
  Report Type: Report from Study
  Country: ES (occurrence: ES)
  Receive Date: 20160804
  Receipt Date: 20160804
  Transmission Date: 20161109
  Serious: Yes (Death)
  Sender: FDA-Public Use
  Company Number: ES-009507513-1607ESP012481

PATIENT
  Age: 61 Year
  Sex: Male

DRUGS (5)
  1. CELESTONE CRONODOSE [Suspect]
     Active Substance: BETAMETHASONE
     Indication: LIGAMENT SPRAIN
     Dosage: 1 VIAL OF 2 ML, ONCE (CELESTONE ROUTE: INTRA-ARTICULAR INDICATION: RIGHT ACROMIOCLAVICULAR SPRAIN)
     Route: 014
     Dates: start: 20160128, end: 20160128
  2. PAROXETINE. [Concomitant]
     Active Substance: PAROXETINE
     Indication: DEPRESSION
     Dosage: 20 MG, QD (1-0-0)
     Route: 048
     Dates: start: 20141020
  3. ACETAMINOPHEN. [Concomitant]
     Active Substance: ACETAMINOPHEN
     Indication: OSTEOARTHRITIS
     Dosage: 650 MG, TID (1-1-1)
     Route: 048
     Dates: start: 20150521
  4. OMEPRAZOLE. [Concomitant]
     Active Substance: OMEPRAZOLE
     Dosage: 20 MG, QD (1-0-0)
     Route: 048
     Dates: start: 20150521
  5. LORAZEPAM. [Concomitant]
     Active Substance: LORAZEPAM
     Indication: ANXIETY
     Dosage: 1 MG, BID (1/2-0-1/2)
     Route: 048
     Dates: start: 20160119

REACTIONS (3)
  - Injection site necrosis [Fatal]
  - Injection site joint infection [Fatal]
  - Sepsis [Fatal]

NARRATIVE: CASE EVENT DATE: 20160130
